FAERS Safety Report 22286862 (Version 1)
Quarter: 2023Q2

REPORT INFORMATION
  Report Type: Spontaneous
  Country: DE (occurrence: DE)
  Receive Date: 20230505
  Receipt Date: 20230505
  Transmission Date: 20230722
  Serious: Yes (Other)
  Sender: FDA-Public Use
  Company Number: DE-SANOFI-01595229

PATIENT
  Age: 76 Year
  Sex: Female

DRUGS (1)
  1. PRALUENT [Suspect]
     Active Substance: ALIROCUMAB
     Indication: Product used for unknown indication
     Dosage: UNK
     Dates: start: 20230414

REACTIONS (6)
  - Angioedema [Recovered/Resolved]
  - Swelling of eyelid [Recovered/Resolved]
  - Eye pruritus [Recovered/Resolved]
  - Haemorrhoids [Recovered/Resolved]
  - Urticaria [Recovered/Resolved]
  - Pruritus [Recovered/Resolved]

NARRATIVE: CASE EVENT DATE: 20230416
